FAERS Safety Report 7794240-1 (Version None)
Quarter: 2011Q4

REPORT INFORMATION
  Report Type: 
  Country: None (occurrence: None)
  Receive Date: 20111004
  Receipt Date: 20110926
  Transmission Date: 20120403
  Serious: Yes (Other)
  Sender: FDA-Public Use
  Company Number: KR-ASTELLAS-2011JP006850

PATIENT
  Sex: Female
  Weight: 70 kg

DRUGS (4)
  1. TACROLIMUS [Suspect]
     Indication: LUPUS NEPHRITIS
     Dosage: UNK
     Route: 048
     Dates: start: 20110916, end: 20110921
  2. PREDNISOLONE [Concomitant]
     Indication: SYSTEMIC LUPUS ERYTHEMATOSUS
     Dosage: 20 MG, UNKNOWN/D
     Route: 048
     Dates: start: 20110802
  3. ADICAL [Concomitant]
     Indication: OSTEOPOROSIS PROPHYLAXIS
     Dosage: 2 DF, UNKNOWN/D
     Route: 048
     Dates: start: 20030903
  4. RANITIDINE HCL [Concomitant]
     Indication: GASTROINTESTINAL DISORDER
     Dosage: 150 MG, UNKNOWN/D
     Route: 048
     Dates: start: 20081125

REACTIONS (3)
  - PREGNANCY [None]
  - ABORTION INDUCED [None]
  - MATERNAL EXPOSURE DURING PREGNANCY [None]
